FAERS Safety Report 5675321-5 (Version None)
Quarter: 2008Q2

REPORT INFORMATION
  Report Type: 
  Country: None (occurrence: None)
  Receive Date: 20080307
  Receipt Date: 20070730
  Transmission Date: 20081010
  Serious: Yes (Hospitalization)
  Sender: FDA-Public Use
  Company Number: US200707007214

PATIENT
  Age: 68 Year
  Sex: Female

DRUGS (2)
  1. GEMZAR [Suspect]
     Dosage: 1000 MG/M2
     Dates: start: 20070718, end: 20070725
  2. CARBOPLATIN [Concomitant]

REACTIONS (1)
  - PLATELET COUNT DECREASED [None]
